FAERS Safety Report 16839122 (Version 1)
Quarter: 2019Q4

REPORT INFORMATION
  Report Type: Spontaneous
  Country: US (occurrence: US)
  Receive Date: 20190920
  Receipt Date: 20190920
  Transmission Date: 20200122
  Serious: Yes (Other)
  Sender: FDA-Public Use
  Company Number: None

PATIENT
  Age: 57 Year
  Sex: Female
  Weight: 141.75 kg

DRUGS (7)
  1. ESCITALOPRAM OXALATE. [Suspect]
     Active Substance: ESCITALOPRAM OXALATE
     Indication: BIPOLAR DISORDER
     Route: 048
     Dates: start: 20190205, end: 20190306
  2. ALLPURINOL [Concomitant]
     Active Substance: ALLOPURINOL
  3. COENZYME Q10 [Concomitant]
     Active Substance: UBIDECARENONE
  4. OXCARBAZEPINE. [Concomitant]
     Active Substance: OXCARBAZEPINE
  5. HYDROXYZINE [Concomitant]
     Active Substance: HYDROXYZINE HYDROCHLORIDE
  6. GABAPENTIN. [Concomitant]
     Active Substance: GABAPENTIN
  7. MULTIVITAMIN [Concomitant]
     Active Substance: VITAMINS

REACTIONS (4)
  - Anxiety [None]
  - Panic attack [None]
  - Therapy change [None]
  - Asthenia [None]

NARRATIVE: CASE EVENT DATE: 20190306
